FAERS Safety Report 20995589 (Version 1)
Quarter: 2022Q2

REPORT INFORMATION
  Report Type: Spontaneous
  Country: US (occurrence: US)
  Receive Date: 20220623
  Receipt Date: 20220623
  Transmission Date: 20220721
  Serious: No
  Sender: FDA-Public Use
  Company Number: US-Accord-244920

PATIENT
  Sex: Male

DRUGS (1)
  1. CLONAZEPAM [Suspect]
     Active Substance: CLONAZEPAM
     Indication: Product used for unknown indication
     Dosage: TWICE A DAY
     Route: 048

REACTIONS (8)
  - Pain in extremity [Unknown]
  - Dizziness [Unknown]
  - Somnolence [Unknown]
  - Memory impairment [Unknown]
  - Dyspnoea [Unknown]
  - Balance disorder [Unknown]
  - Confusional state [Unknown]
  - Asthenia [Unknown]
